FAERS Safety Report 8475367-8 (Version None)
Quarter: 2012Q2

REPORT INFORMATION
  Report Type: 
  Country: None (occurrence: None)
  Receive Date: 20120628
  Receipt Date: 20120614
  Transmission Date: 20120825
  Serious: Yes (Life-Threatening, Hospitalization)
  Sender: FDA-Public Use
  Company Number: CH-ROCHE-1078804

PATIENT
  Age: 77 Year
  Sex: Female
  Weight: 42 kg

DRUGS (5)
  1. PREDNISOLONE [Concomitant]
     Route: 048
     Dates: end: 20120412
  2. AVASTIN [Suspect]
     Indication: OVARIAN CANCER
     Route: 042
     Dates: start: 20120301, end: 20120412
  3. ALENDRONATE SODIUM [Concomitant]
     Route: 048
     Dates: end: 20120412
  4. MARCUMAR [Concomitant]
     Route: 048
     Dates: end: 20120412
  5. BISOPROLOL FUMARATE [Concomitant]
     Route: 048
     Dates: end: 20120412

REACTIONS (6)
  - HEADACHE [None]
  - GRAND MAL CONVULSION [None]
  - VISUAL IMPAIRMENT [None]
  - ENCEPHALOPATHY [None]
  - CIRCULATORY COLLAPSE [None]
  - CONFUSIONAL STATE [None]
